FAERS Safety Report 10208406 (Version 1)
Quarter: 2014Q2

REPORT INFORMATION
  Report Type: Report from Study
  Country: US (occurrence: US)
  Receive Date: 20140530
  Receipt Date: 20140530
  Transmission Date: 20141212
  Serious: Yes (Hospitalization)
  Sender: FDA-Public Use
  Company Number: US-TAKEDA-2014TUS004237

PATIENT
  Age: 38 Year
  Sex: Male

DRUGS (12)
  1. COLCHICINE [Suspect]
     Indication: GOUT
     Dosage: 0.6 MG, QD
     Route: 048
     Dates: start: 20131013
  2. CYCLOBENZAPRINE HYDROCHLORIDE [Concomitant]
  3. TAPENTADOL HYDROCHLORIDE [Concomitant]
  4. ACETYLSALICYLIC ACID [Concomitant]
  5. SAW PALMETTO                       /00833501/ [Concomitant]
  6. ZINC [Concomitant]
  7. MULTIVITAMIN                       /00097801/ [Concomitant]
  8. TESTOSTERONE [Concomitant]
  9. VITAMIN B 12 [Concomitant]
  10. VITAMIN D                          /00107901/ [Concomitant]
  11. IRBESARTAN [Concomitant]
  12. NAPROXEN SODIUM W/PSEUDOEPHEDRINE HCL [Concomitant]

REACTIONS (2)
  - Colitis [Recovered/Resolved]
  - Dyspnoea [Unknown]
